FAERS Safety Report 22253637 (Version 3)
Quarter: 2025Q1

REPORT INFORMATION
  Report Type: Spontaneous
  Country: CA (occurrence: CA)
  Receive Date: 20230426
  Receipt Date: 20250204
  Transmission Date: 20250408
  Serious: Yes (Hospitalization, Other)
  Sender: AUROBINDO
  Company Number: CA-AUROBINDO-AUR-APL-2023-031624

PATIENT
  Age: 71 Year
  Sex: Female
  Weight: 89 kg

DRUGS (95)
  1. AZITHROMYCIN [Suspect]
     Active Substance: AZITHROMYCIN
     Indication: Product used for unknown indication
     Route: 065
  2. ATORVASTATIN [Suspect]
     Active Substance: ATORVASTATIN
     Indication: Product used for unknown indication
     Route: 065
  3. CIPROFLOXACIN [Suspect]
     Active Substance: CIPROFLOXACIN
     Indication: Product used for unknown indication
     Route: 065
  4. HYDROCORTISONE [Suspect]
     Active Substance: HYDROCORTISONE
     Indication: Product used for unknown indication
     Route: 065
  5. METRONIDAZOLE [Suspect]
     Active Substance: METRONIDAZOLE
     Indication: Product used for unknown indication
     Route: 065
  6. PANTOPRAZOLE [Suspect]
     Active Substance: PANTOPRAZOLE
     Indication: Product used for unknown indication
     Route: 065
  7. SULFAMETHOXAZOLE\TRIMETHOPRIM [Suspect]
     Active Substance: SULFAMETHOXAZOLE\TRIMETHOPRIM
     Indication: Product used for unknown indication
     Route: 065
  8. VALSARTAN [Suspect]
     Active Substance: VALSARTAN
     Indication: Product used for unknown indication
     Route: 065
  9. SUCRALFATE [Suspect]
     Active Substance: SUCRALFATE
     Indication: Product used for unknown indication
     Route: 065
  10. ACETAMINOPHEN [Suspect]
     Active Substance: ACETAMINOPHEN
     Indication: Product used for unknown indication
     Route: 065
  11. ACETAMINOPHEN\PROPOXYPHENE HYDROCHLORIDE [Suspect]
     Active Substance: ACETAMINOPHEN\PROPOXYPHENE HYDROCHLORIDE
     Indication: Product used for unknown indication
     Route: 065
  12. ACETIC ACID\TRIAMCINOLONE [Suspect]
     Active Substance: ACETIC ACID\TRIAMCINOLONE
     Indication: Product used for unknown indication
     Route: 065
  13. ASPIRIN [Suspect]
     Active Substance: ASPIRIN
     Indication: Product used for unknown indication
     Route: 065
  14. ASPIRIN\CITRIC ACID MONOHYDRATE\SODIUM BICARBONATE [Suspect]
     Active Substance: ASPIRIN\CITRIC ACID MONOHYDRATE\SODIUM BICARBONATE
     Indication: Product used for unknown indication
     Route: 065
  15. ALPRAZOLAM [Suspect]
     Active Substance: ALPRAZOLAM
     Indication: Product used for unknown indication
     Route: 065
  16. AMBROXOL HYDROCHLORIDE [Suspect]
     Active Substance: AMBROXOL HYDROCHLORIDE
     Indication: Product used for unknown indication
     Route: 065
  17. AMOXICILLIN TRIHYDRATE [Suspect]
     Active Substance: AMOXICILLIN
     Indication: Product used for unknown indication
     Route: 065
  18. PREGABALIN [Suspect]
     Active Substance: PREGABALIN
     Indication: Product used for unknown indication
     Route: 065
  19. DIPHENOXYLATE HYDROCHLORIDE AND ATROPINE SULFATE [Suspect]
     Active Substance: ATROPINE SULFATE\DIPHENOXYLATE HYDROCHLORIDE
     Indication: Product used for unknown indication
     Route: 048
  20. BENZYDAMINE [Suspect]
     Active Substance: BENZYDAMINE
     Indication: Product used for unknown indication
     Route: 065
  21. BETAMETHASONE DIPROPIONATE [Suspect]
     Active Substance: BETAMETHASONE DIPROPIONATE
     Indication: Product used for unknown indication
     Route: 065
  22. BETAMETHASONE VALERATE [Suspect]
     Active Substance: BETAMETHASONE VALERATE
     Indication: Product used for unknown indication
     Route: 065
  23. BIAXIN [Suspect]
     Active Substance: CLARITHROMYCIN
     Indication: Product used for unknown indication
     Route: 065
  24. BISACODYL [Suspect]
     Active Substance: BISACODYL
     Indication: Product used for unknown indication
     Route: 065
  25. BUDESONIDE [Suspect]
     Active Substance: BUDESONIDE
     Indication: Product used for unknown indication
     Route: 048
  26. CALCITRIOL\CALCIUM CARBONATE\ZINC [Suspect]
     Active Substance: CALCITRIOL\CALCIUM CARBONATE\ZINC
     Indication: Product used for unknown indication
     Route: 065
  27. CALCIUM\VITAMIN D [Suspect]
     Active Substance: CALCIUM\VITAMIN D
     Indication: Product used for unknown indication
     Route: 065
  28. CALCIUM CARBONATE\CALCIUM LACTATE GLUCONATE [Suspect]
     Active Substance: CALCIUM CARBONATE\CALCIUM LACTATE GLUCONATE
     Indication: Product used for unknown indication
     Route: 065
  29. CETIRIZINE HYDROCHLORIDE [Suspect]
     Active Substance: CETIRIZINE HYDROCHLORIDE
     Indication: Product used for unknown indication
     Route: 065
  30. CIPROFLOXACIN HYDROCHLORIDE [Suspect]
     Active Substance: CIPROFLOXACIN HYDROCHLORIDE
     Indication: Product used for unknown indication
     Route: 065
  31. CLARITHROMYCIN [Suspect]
     Active Substance: CLARITHROMYCIN
     Indication: Product used for unknown indication
     Route: 065
  32. CLOTRIMAZOLE [Suspect]
     Active Substance: CLOTRIMAZOLE
     Indication: Product used for unknown indication
     Route: 065
  33. CORTENEMA [Suspect]
     Active Substance: HYDROCORTISONE
     Indication: Product used for unknown indication
     Route: 065
  34. DESONIDE [Suspect]
     Active Substance: DESONIDE
     Indication: Product used for unknown indication
     Route: 065
  35. DIPHENHYDRAMINE HYDROCHLORIDE [Suspect]
     Active Substance: DIPHENHYDRAMINE HYDROCHLORIDE
     Indication: Product used for unknown indication
     Route: 065
  36. ENTYVIO [Suspect]
     Active Substance: VEDOLIZUMAB
     Indication: Product used for unknown indication
     Route: 065
  37. ERTAPENEM SODIUM [Suspect]
     Active Substance: ERTAPENEM SODIUM
     Indication: Product used for unknown indication
     Route: 065
  38. FENTANYL [Suspect]
     Active Substance: FENTANYL
     Indication: Product used for unknown indication
     Route: 065
  39. FENTANYL CITRATE [Suspect]
     Active Substance: FENTANYL CITRATE
     Indication: Product used for unknown indication
     Route: 065
  40. FLUCONAZOLE [Suspect]
     Active Substance: FLUCONAZOLE
     Indication: Product used for unknown indication
     Route: 065
  41. FLUTICASONE FUROATE [Suspect]
     Active Substance: FLUTICASONE FUROATE
     Indication: Product used for unknown indication
     Route: 065
  42. FLUTICASONE PROPIONATE [Suspect]
     Active Substance: FLUTICASONE PROPIONATE
     Indication: Product used for unknown indication
     Route: 065
  43. FRAMYCETIN SULFATE [Suspect]
     Active Substance: FRAMYCETIN SULFATE
     Indication: Product used for unknown indication
     Route: 065
  44. FRUCTOSE [Suspect]
     Active Substance: FRUCTOSE
     Indication: Product used for unknown indication
     Route: 065
  45. GLYCERIN [Suspect]
     Active Substance: GLYCERIN
     Indication: Product used for unknown indication
     Route: 048
  46. GLYCERIN [Suspect]
     Active Substance: GLYCERIN
     Indication: Product used for unknown indication
     Route: 065
  47. NITROGLYCERIN [Suspect]
     Active Substance: NITROGLYCERIN
     Indication: Product used for unknown indication
     Route: 065
  48. GRAMICIDIN\NEOMYCIN SULFATE\POLYMYXIN B SULFATE [Suspect]
     Active Substance: GRAMICIDIN\NEOMYCIN SULFATE\POLYMYXIN B SULFATE
     Indication: Product used for unknown indication
     Route: 065
  49. HUMIRA [Suspect]
     Active Substance: ADALIMUMAB
     Indication: Crohn^s disease
     Route: 065
  50. HYDROCHLOROTHIAZIDE [Suspect]
     Active Substance: HYDROCHLOROTHIAZIDE
     Indication: Product used for unknown indication
     Route: 065
  51. HYDROMORPHONE HYDROCHLORIDE [Suspect]
     Active Substance: HYDROMORPHONE HYDROCHLORIDE
     Indication: Crohn^s disease
     Route: 065
  52. ISONIAZID\PYRIDOXINE\SULFAMETHOXAZOLE\TRIMETHOPRIM [Suspect]
     Active Substance: ISONIAZID\PYRIDOXINE\SULFAMETHOXAZOLE\TRIMETHOPRIM
     Indication: Product used for unknown indication
     Route: 065
  53. LOPERAMIDE HYDROCHLORIDE [Suspect]
     Active Substance: LOPERAMIDE HYDROCHLORIDE
     Indication: Product used for unknown indication
     Dosage: 1 DOSAGE FORM, FOUR TIMES/DAY
     Route: 048
  54. POLYETHYLENE GLYCOL 3350\POTASSIUM CHLORIDE\SODIUM BICARBONATE\SODIUM [Suspect]
     Active Substance: POLYETHYLENE GLYCOL 3350\POTASSIUM CHLORIDE\SODIUM BICARBONATE\SODIUM CHLORIDE
     Indication: Product used for unknown indication
     Route: 065
  55. MAGNESIUM CARBONATE [Suspect]
     Active Substance: MAGNESIUM CARBONATE
     Indication: Product used for unknown indication
     Route: 065
  56. MAGNESIUM OXIDE [Suspect]
     Active Substance: MAGNESIUM OXIDE
     Indication: Product used for unknown indication
     Route: 065
  57. MAGNESIUM SULFATE [Suspect]
     Active Substance: MAGNESIUM SULFATE
     Indication: Product used for unknown indication
     Route: 042
  58. MAGNESIUM SULFATE [Suspect]
     Active Substance: MAGNESIUM SULFATE
     Indication: Product used for unknown indication
     Route: 065
  59. MESALAMINE [Suspect]
     Active Substance: MESALAMINE
     Indication: Colitis
     Dosage: 3 TIMES A DAY
     Route: 065
  60. METHYLPREDNISOLONE SODIUM SUCCINATE [Suspect]
     Active Substance: METHYLPREDNISOLONE SODIUM SUCCINATE
     Indication: Product used for unknown indication
     Route: 065
  61. MIDAZOLAM [Suspect]
     Active Substance: MIDAZOLAM
     Indication: Product used for unknown indication
     Route: 065
  62. MORPHINE SULFATE [Suspect]
     Active Substance: MORPHINE SULFATE
     Indication: Product used for unknown indication
     Route: 065
  63. MUPIROCIN [Suspect]
     Active Substance: MUPIROCIN
     Indication: Product used for unknown indication
     Route: 061
  64. NADOLOL [Suspect]
     Active Substance: NADOLOL
     Indication: Product used for unknown indication
     Route: 065
  65. NICODERM CQ [Suspect]
     Active Substance: NICOTINE
     Indication: Product used for unknown indication
     Route: 065
  66. NICOTINAMIDE [Suspect]
     Active Substance: NIACINAMIDE
     Indication: Product used for unknown indication
     Route: 065
  67. NICOTINE [Suspect]
     Active Substance: NICOTINE
     Indication: Product used for unknown indication
     Route: 065
  68. OXYBUTYNIN CHLORIDE [Suspect]
     Active Substance: OXYBUTYNIN CHLORIDE
     Indication: Product used for unknown indication
     Route: 065
  69. POTASSIUM CHLORIDE [Suspect]
     Active Substance: POTASSIUM CHLORIDE
     Indication: Product used for unknown indication
     Route: 065
  70. PREDNISONE [Suspect]
     Active Substance: PREDNISONE
     Indication: Product used for unknown indication
     Route: 065
  71. PYRIDOXINE [Suspect]
     Active Substance: PYRIDOXINE
     Indication: Product used for unknown indication
     Route: 065
  72. REFRESH TEARS [Suspect]
     Active Substance: CARBOXYMETHYLCELLULOSE SODIUM
     Indication: Product used for unknown indication
     Route: 065
  73. SODIUM CHLORIDE [Suspect]
     Active Substance: SODIUM CHLORIDE
     Indication: Product used for unknown indication
     Route: 065
  74. HERBALS [Suspect]
     Active Substance: HERBALS
     Indication: Product used for unknown indication
     Route: 065
  75. SODIUM BICARBONATE\SODIUM CHLORIDE [Suspect]
     Active Substance: SODIUM BICARBONATE\SODIUM CHLORIDE
     Indication: Product used for unknown indication
     Route: 065
  76. CARBOXYMETHYLCELLULOSE SODIUM [Suspect]
     Active Substance: CARBOXYMETHYLCELLULOSE SODIUM
     Indication: Product used for unknown indication
     Route: 065
  77. SODIUM STEARATE [Suspect]
     Active Substance: SODIUM STEARATE
     Indication: Product used for unknown indication
     Route: 065
  78. TRIAMCINOLONE [Suspect]
     Active Substance: TRIAMCINOLONE
     Indication: Product used for unknown indication
     Route: 065
  79. TRIAMCINOLONE ACETONIDE [Suspect]
     Active Substance: TRIAMCINOLONE ACETONIDE
     Indication: Product used for unknown indication
     Route: 014
  80. TRIMETHOPRIM [Suspect]
     Active Substance: TRIMETHOPRIM
     Indication: Product used for unknown indication
     Route: 065
  81. UBIDECARENONE [Suspect]
     Active Substance: UBIDECARENONE
     Indication: Product used for unknown indication
     Route: 065
  82. VITAMIN D3 [Suspect]
     Active Substance: CHOLECALCIFEROL
     Indication: Product used for unknown indication
     Route: 065
  83. XANTOFYL PALMITATE [Suspect]
     Active Substance: XANTOFYL PALMITATE
     Indication: Product used for unknown indication
     Route: 065
  84. ZEAXANTHIN [Suspect]
     Active Substance: ZEAXANTHIN
     Indication: Product used for unknown indication
     Route: 065
  85. ZINC OXIDE [Suspect]
     Active Substance: ZINC OXIDE
     Indication: Product used for unknown indication
     Route: 065
  86. ZOPICLONE [Suspect]
     Active Substance: ZOPICLONE
     Indication: Product used for unknown indication
     Route: 065
  87. BIFIDOBACTERIUM SPP. [Suspect]
     Active Substance: BIFIDOBACTERIUM SPP.
     Indication: Product used for unknown indication
     Route: 065
  88. METRONIDAZOLE [Suspect]
     Active Substance: METRONIDAZOLE
     Indication: Product used for unknown indication
     Route: 065
  89. ACETAMINOPHEN\CODEINE PHOSPHATE [Suspect]
     Active Substance: ACETAMINOPHEN\CODEINE PHOSPHATE
     Indication: Product used for unknown indication
     Route: 065
  90. ADALIMUMAB [Suspect]
     Active Substance: ADALIMUMAB
     Indication: Crohn^s disease
     Route: 058
  91. ASCORBIC ACID [Suspect]
     Active Substance: ASCORBIC ACID
     Indication: Product used for unknown indication
     Route: 065
  92. ATROPINE SULFATE [Suspect]
     Active Substance: ATROPINE SULFATE
     Indication: Product used for unknown indication
     Route: 065
  93. ISONIAZID [Suspect]
     Active Substance: ISONIAZID
     Indication: Product used for unknown indication
     Route: 065
  94. LOMOTIL [Suspect]
     Active Substance: ATROPINE SULFATE\DIPHENOXYLATE HYDROCHLORIDE
     Indication: Product used for unknown indication
     Route: 048
  95. NUCALA [Suspect]
     Active Substance: MEPOLIZUMAB
     Indication: Product used for unknown indication
     Route: 058

REACTIONS (30)
  - Weight decreased [Not Recovered/Not Resolved]
  - Colitis ulcerative [Not Recovered/Not Resolved]
  - Abdominal pain [Not Recovered/Not Resolved]
  - Chronic sinusitis [Not Recovered/Not Resolved]
  - Colitis [Not Recovered/Not Resolved]
  - Anaemia [Not Recovered/Not Resolved]
  - Constipation [Not Recovered/Not Resolved]
  - Dyspepsia [Not Recovered/Not Resolved]
  - Erythema [Not Recovered/Not Resolved]
  - Female genital tract fistula [Not Recovered/Not Resolved]
  - Frequent bowel movements [Not Recovered/Not Resolved]
  - Haematochezia [Not Recovered/Not Resolved]
  - Headache [Not Recovered/Not Resolved]
  - Infusion related reaction [Not Recovered/Not Resolved]
  - Macular degeneration [Not Recovered/Not Resolved]
  - Malaise [Not Recovered/Not Resolved]
  - Nausea [Not Recovered/Not Resolved]
  - Oral candidiasis [Not Recovered/Not Resolved]
  - Pain [Not Recovered/Not Resolved]
  - Paraesthesia oral [Not Recovered/Not Resolved]
  - Procedural pain [Not Recovered/Not Resolved]
  - Proctitis [Not Recovered/Not Resolved]
  - Pyrexia [Not Recovered/Not Resolved]
  - Radiculopathy [Not Recovered/Not Resolved]
  - Rectal haemorrhage [Not Recovered/Not Resolved]
  - Vaginal discharge [Not Recovered/Not Resolved]
  - Vaginal flatulence [Not Recovered/Not Resolved]
  - Off label use [Not Recovered/Not Resolved]
  - Therapeutic product effect incomplete [Not Recovered/Not Resolved]
  - Drug ineffective [Not Recovered/Not Resolved]
